FAERS Safety Report 8556047-7 (Version None)
Quarter: 2012Q3

REPORT INFORMATION
  Report Type: 
  Country: None (occurrence: None)
  Receive Date: 20120801
  Receipt Date: 20100917
  Transmission Date: 20120928
  Serious: Yes (Hospitalization, Other)
  Sender: FDA-Public Use
  Company Number: US-BAYER-201030887NA

PATIENT
  Age: 29 Year
  Sex: Female
  Weight: 84 kg

DRUGS (20)
  1. DROSPIRENONE AND ETHINYL ESTRADIOL [Suspect]
     Indication: ORAL CONTRACEPTION
     Route: 048
     Dates: start: 20040101, end: 20090101
  2. MOTRIN [Concomitant]
     Dosage: 400 MG, Q4HR
     Route: 048
  3. ZOFRAN [Concomitant]
     Dosage: 4 MG, UNK
     Route: 042
     Dates: start: 20080121
  4. PERCOCET [Concomitant]
     Dosage: UNK
     Dates: start: 20080121, end: 20080121
  5. SODIUM CHLORIDE [Concomitant]
     Dosage: 1000 UNK, UNK
     Route: 042
     Dates: start: 20080121
  6. IMITREX [Concomitant]
     Dosage: 6 MG, UNK
     Route: 048
  7. ZANTAC [Concomitant]
     Route: 065
  8. ALKA SELTZER [Concomitant]
  9. YASMIN [Suspect]
     Indication: ORAL CONTRACEPTION
     Dosage: ON 13-OCT-2006 SHE WAS ON YASMIN
     Route: 048
     Dates: start: 20060101, end: 20090201
  10. LORAZEPAM [Concomitant]
     Dosage: 0.5 MG, TID
     Route: 048
  11. ROXICET [Concomitant]
  12. AMOXICILLIN [Concomitant]
  13. ZANTAC [Concomitant]
     Dosage: 50 MG, UNK
     Route: 042
     Dates: start: 20080121
  14. SUMATRIPTAN [Concomitant]
  15. ATROVENT [Concomitant]
     Dosage: UNK UNK, QID
     Route: 048
  16. ANTIBIOTICS [Concomitant]
  17. FENTANYL CITRATE [Concomitant]
     Dosage: 100 MG, UNK
     Route: 042
     Dates: start: 20080121
  18. YAZ [Suspect]
     Indication: ORAL CONTRACEPTION
     Route: 048
     Dates: start: 20040101, end: 20090101
  19. CLONAZEPAM [Concomitant]
  20. CALCIUM CARBONATE [Concomitant]

REACTIONS (11)
  - CHOLELITHIASIS [None]
  - ANAL FISSURE [None]
  - GASTROOESOPHAGEAL REFLUX DISEASE [None]
  - BACK PAIN [None]
  - CHOLECYSTITIS CHRONIC [None]
  - ABDOMINAL PAIN UPPER [None]
  - VOMITING [None]
  - DIARRHOEA [None]
  - DYSPEPSIA [None]
  - RECTAL HAEMORRHAGE [None]
  - BILIARY COLIC [None]
